FAERS Safety Report 20964345 (Version 1)
Quarter: 2022Q2

REPORT INFORMATION
  Report Type: Spontaneous
  Country: CH (occurrence: CH)
  Receive Date: 20220615
  Receipt Date: 20220615
  Transmission Date: 20220721
  Serious: Yes (Other)
  Sender: FDA-Public Use
  Company Number: None

PATIENT
  Age: 28 Year
  Sex: Male

DRUGS (5)
  1. LORAZEPAM [Interacting]
     Active Substance: LORAZEPAM
     Dosage: 2.5 MG, 2X/DAY
     Route: 048
  2. ZUCLOPENTHIXOL HYDROCHLORIDE [Interacting]
     Active Substance: ZUCLOPENTHIXOL HYDROCHLORIDE
     Indication: Schizophrenia
     Dosage: UP TO 20 MG, DAILY
     Route: 048
     Dates: start: 202203, end: 202204
  3. ZUCLOPENTHIXOL HYDROCHLORIDE [Interacting]
     Active Substance: ZUCLOPENTHIXOL HYDROCHLORIDE
     Dosage: DEPOT TREATMENT OF 200 MG EVERY TWO WEEKS
     Route: 030
     Dates: start: 20220407
  4. AKINETON [Concomitant]
     Active Substance: BIPERIDEN HYDROCHLORIDE
  5. VITAMIN D3 [Concomitant]
     Active Substance: CHOLECALCIFEROL

REACTIONS (3)
  - Potentiating drug interaction [Not Recovered/Not Resolved]
  - Disturbance in attention [Recovered/Resolved]
  - Sedation [Not Recovered/Not Resolved]

NARRATIVE: CASE EVENT DATE: 20220301
